FAERS Safety Report 25553814 (Version 1)
Quarter: 2025Q3

REPORT INFORMATION
  Report Type: Other
  Country: GB (occurrence: GB)
  Receive Date: 20250715
  Receipt Date: 20250715
  Transmission Date: 20251021
  Serious: Yes (Life-Threatening, Other)
  Sender: MACLEODS
  Company Number: GB-MACLEODS PHARMA-MAC2024046330

PATIENT

DRUGS (1)
  1. ESCITALOPRAM [Suspect]
     Active Substance: ESCITALOPRAM OXALATE
     Indication: Product used for unknown indication
     Dosage: 1 DOSAGE FORM, BID (5 MG TABLETS TWICE A DAY)
     Route: 065

REACTIONS (5)
  - Suicidal ideation [Unknown]
  - Drug withdrawal syndrome [Unknown]
  - Malaise [Unknown]
  - Product use issue [Unknown]
  - Product availability issue [Unknown]
